FAERS Safety Report 11039202 (Version 1)
Quarter: 2015Q2

REPORT INFORMATION
  Report Type: Spontaneous
  Country: TR (occurrence: TR)
  Receive Date: 20150416
  Receipt Date: 20150416
  Transmission Date: 20150821
  Serious: Yes (Hospitalization, Other)
  Sender: FDA-Public Use
  Company Number: TR-PFIZER INC-2015120317

PATIENT
  Age: 35 Year
  Sex: Male

DRUGS (3)
  1. ATORVASTATIN CALCIUM. [Suspect]
     Active Substance: ATORVASTATIN CALCIUM
     Indication: ARTERIOSCLEROSIS CORONARY ARTERY
     Dosage: 20 MG, 1X/DAY
  2. ATORVASTATIN CALCIUM. [Suspect]
     Active Substance: ATORVASTATIN CALCIUM
     Dosage: 20 MG, EVERY OTHER DAY
  3. ACETYLSALICYLIC ACID [Concomitant]
     Active Substance: ASPIRIN
     Indication: ARTERIOSCLEROSIS CORONARY ARTERY
     Dosage: 100 MG, DAILY

REACTIONS (7)
  - Fatigue [Unknown]
  - Blood testosterone decreased [Recovering/Resolving]
  - Blood luteinising hormone decreased [Recovering/Resolving]
  - Blood prolactin decreased [Recovering/Resolving]
  - Libido decreased [Unknown]
  - Sexual dysfunction [Unknown]
  - Blood follicle stimulating hormone decreased [Recovering/Resolving]
